FAERS Safety Report 22153231 (Version 2)
Quarter: 2024Q1

REPORT INFORMATION
  Report Type: Spontaneous
  Country: IL (occurrence: IL)
  Receive Date: 20230329
  Receipt Date: 20240221
  Transmission Date: 20240410
  Serious: Yes (Other)
  Sender: FDA-Public Use
  Company Number: IL-009507513-2303ISR009229

PATIENT
  Age: 47 Year
  Sex: Female

DRUGS (5)
  1. PEMBROLIZUMAB [Suspect]
     Active Substance: PEMBROLIZUMAB
     Indication: Triple negative breast cancer
     Dosage: EVERY 3 WEEKS
  2. CARBOPLATIN [Suspect]
     Active Substance: CARBOPLATIN
     Indication: Triple negative breast cancer
     Dosage: ONCE WEEKLY
  3. TAXOL [Suspect]
     Active Substance: PACLITAXEL
     Indication: Triple negative breast cancer
     Dosage: ONCE WEEKLY
  4. DOXORUBICIN [Suspect]
     Active Substance: DOXORUBICIN
     Indication: Triple negative breast cancer
     Dosage: UNK
  5. CYCLOPHOSPHAMIDE [Suspect]
     Active Substance: CYCLOPHOSPHAMIDE
     Indication: Triple negative breast cancer
     Dosage: UNK

REACTIONS (8)
  - Autoimmune disorder [Unknown]
  - Cellulitis [Unknown]
  - Adrenocorticotropic hormone deficiency [Unknown]
  - Malaise [Unknown]
  - Headache [Unknown]
  - Diarrhoea [Unknown]
  - Pyrexia [Unknown]
  - Post procedural haematoma [Unknown]
